FAERS Safety Report 5205547-6 (Version None)
Quarter: 2006Q4

REPORT INFORMATION
  Report Type: 
  Country: None (occurrence: None)
  Receive Date: 20061027
  Receipt Date: 20060706
  Transmission Date: 20070319
  Serious: No
  Sender: FDA-Public Use
  Company Number: 200615793US

PATIENT
  Sex: Female

DRUGS (2)
  1. KETEK [Suspect]
     Dosage: 400 MG BID
     Dates: start: 20060101
  2. VAGINAL ANTIFUNGAL [Suspect]

REACTIONS (2)
  - ABDOMINAL DISTENSION [None]
  - DIARRHOEA [None]
